FAERS Safety Report 8117426-5 (Version None)
Quarter: 2012Q1

REPORT INFORMATION
  Report Type: 
  Country: None (occurrence: None)
  Receive Date: 20120207
  Receipt Date: 20120123
  Transmission Date: 20120608
  Serious: Yes (Other)
  Sender: FDA-Public Use
  Company Number: BR-RANBAXY-2012R5-52161

PATIENT

DRUGS (2)
  1. CEFUROXIME AXETIL [Suspect]
     Indication: SINUSITIS
     Dosage: 500 MG, BID
     Route: 048
     Dates: start: 20120117, end: 20120123
  2. CEFUROXIME AXETIL [Suspect]
     Indication: FURUNCLE

REACTIONS (2)
  - DIVERTICULITIS [None]
  - ABDOMINAL PAIN [None]
